FAERS Safety Report 21520175 (Version 1)
Quarter: 2022Q4

REPORT INFORMATION
  Report Type: Report from Study
  Country: US (occurrence: US)
  Receive Date: 20221028
  Receipt Date: 20221028
  Transmission Date: 20230113
  Serious: No
  Sender: FDA-Public Use
  Company Number: US-ABBVIE-4131840

PATIENT
  Sex: Female

DRUGS (1)
  1. HUMIRA [Suspect]
     Active Substance: ADALIMUMAB
     Indication: Rheumatoid arthritis
     Dosage: FORM STRENGTH - 40 MILLIGRAM
     Route: 058

REACTIONS (4)
  - Rheumatoid arthritis [Recovered/Resolved]
  - Blood glucose increased [Unknown]
  - White blood cell count increased [Unknown]
  - Neutrophil count increased [Unknown]
